FAERS Safety Report 5565576-X (Version None)
Quarter: 2007Q4

REPORT INFORMATION
  Report Type: 
  Country: None (occurrence: None)
  Receive Date: 20071218
  Receipt Date: 20060306
  Transmission Date: 20080405
  Serious: Yes (Death, Hospitalization)
  Sender: FDA-Public Use
  Company Number: JP-ROCHE-429144

PATIENT
  Age: 71 Year
  Sex: Male

DRUGS (7)
  1. TORSEMIDE [Suspect]
     Indication: OEDEMA
     Route: 048
     Dates: start: 20051201, end: 20051212
  2. TARGOCID [Concomitant]
     Dates: start: 20051201, end: 20051208
  3. LIPITOR [Concomitant]
  4. SERMION [Concomitant]
  5. BLOPRESS [Concomitant]
  6. GASMOTIN [Concomitant]
  7. ACTOS [Concomitant]

REACTIONS (3)
  - DISSEMINATED INTRAVASCULAR COAGULATION [None]
  - SEPSIS [None]
  - THROMBOCYTOPENIA [None]
